FAERS Safety Report 5132151-0 (Version None)
Quarter: 2006Q4

REPORT INFORMATION
  Report Type: 
  Country: None (occurrence: None)
  Receive Date: 20061017
  Receipt Date: 20061006
  Transmission Date: 20070319
  Serious: Yes (Other)
  Sender: FDA-Public Use
  Company Number: 2006123609

PATIENT
  Age: 35 Year
  Sex: Male
  Weight: 117.9352 kg

DRUGS (1)
  1. PURELL (ETHYL ALCOHOL) [Suspect]
     Dosage: 1 SQUIRT ONCE, OPHTHALMIC
     Route: 047
     Dates: start: 20061003, end: 20061003

REACTIONS (5)
  - ACCIDENTAL EXPOSURE [None]
  - EXCORIATION [None]
  - EYE PAIN [None]
  - EYE PRURITUS [None]
  - VISION BLURRED [None]
